FAERS Safety Report 6565698-0 (Version None)
Quarter: 2010Q1

REPORT INFORMATION
  Report Type: 
  Country: None (occurrence: None)
  Receive Date: 20100201
  Receipt Date: 20100128
  Transmission Date: 20100710
  Serious: Yes (Death)
  Sender: FDA-Public Use
  Company Number: US-B.I. PHARMACEUTICALS,INC./RIDGEFIELD-2009-BP-14321BP

PATIENT
  Sex: Male

DRUGS (6)
  1. AGGRENOX [Suspect]
     Indication: TRANSIENT ISCHAEMIC ATTACK
     Route: 048
     Dates: start: 20040101
  2. CALCIUM CITRATE [Concomitant]
     Route: 048
  3. CITRACAL [Concomitant]
     Indication: MILK ALLERGY
  4. MULTIVITAMIN (WELBY ADULT FORMULA COMPLETE 50+) [Concomitant]
  5. FERGON [Concomitant]
     Indication: MINERAL SUPPLEMENTATION
  6. ACUVAIL [Concomitant]
     Indication: CATARACT
     Route: 031
     Dates: start: 20091116

REACTIONS (6)
  - CATARACT [None]
  - DIABETES MELLITUS [None]
  - EPISTAXIS [None]
  - FOOD ALLERGY [None]
  - HAEMORRHAGIC STROKE [None]
  - URETHRAL STENOSIS [None]
